FAERS Safety Report 19797885 (Version 1)
Quarter: 2021Q3

REPORT INFORMATION
  Report Type: Spontaneous
  Country: US (occurrence: US)
  Receive Date: 20210906
  Receipt Date: 20210906
  Transmission Date: 20211014
  Serious: Yes (Hospitalization)
  Sender: FDA-Public Use
  Company Number: None

PATIENT
  Age: 62 Year
  Sex: Female
  Weight: 60.75 kg

DRUGS (5)
  1. GABAPENTIN. [Concomitant]
     Active Substance: GABAPENTIN
  2. SPIRIVA [Concomitant]
     Active Substance: TIOTROPIUM BROMIDE MONOHYDRATE
  3. VITAMIN D [Concomitant]
     Active Substance: VITAMIN D NOS
  4. FLONASE [Concomitant]
     Active Substance: FLUTICASONE PROPIONATE
  5. TYMLOS [Suspect]
     Active Substance: ABALOPARATIDE
     Indication: OSTEOPOROSIS
     Dates: start: 20210104, end: 20210206

REACTIONS (4)
  - Dizziness [None]
  - Tachycardia [None]
  - Palpitations [None]
  - Chest discomfort [None]

NARRATIVE: CASE EVENT DATE: 20210204
